FAERS Safety Report 9015863 (Version 2)
Quarter: 2013Q1

REPORT INFORMATION
  Report Type: Spontaneous
  Country: US (occurrence: US)
  Receive Date: 20130116
  Receipt Date: 20130301
  Transmission Date: 20140127
  Serious: Yes (Other)
  Sender: FDA-Public Use
  Company Number: PHEH2013US001085

PATIENT
  Sex: Female

DRUGS (2)
  1. NEORAL [Suspect]
     Indication: RENAL TRANSPLANT
     Dosage: 100 MG, BID
     Route: 048
  2. MYFORTIC [Concomitant]

REACTIONS (4)
  - Renal failure [Unknown]
  - Hip fracture [Unknown]
  - Arthralgia [Not Recovered/Not Resolved]
  - Fall [Unknown]
